FAERS Safety Report 8766119 (Version 2)
Quarter: 2013Q2

REPORT INFORMATION
  Report Type: Report from Study
  Country: JP (occurrence: JP)
  Receive Date: 20120904
  Receipt Date: 20130424
  Transmission Date: 20140414
  Serious: Yes (Other)
  Sender: FDA-Public Use
  Company Number: JP-009507513-2012SP021973

PATIENT
  Age: 51 Year
  Sex: Male
  Weight: 69 kg

DRUGS (10)
  1. PEGINTRON [Suspect]
     Indication: CHRONIC HEPATITIS C
     Dosage: 1.5 MICROGRAM PER KILOGRAM, QW
     Route: 058
     Dates: start: 20120209, end: 20120215
  2. PEGINTRON [Suspect]
     Dosage: 0.75 MICROGRAM PER KILOGRAM, QW
     Route: 058
     Dates: start: 20120216, end: 20120502
  3. REBETOL [Suspect]
     Indication: CHRONIC HEPATITIS C
     Dosage: 800 MG, QD
     Route: 048
     Dates: start: 20120209, end: 20120307
  4. REBETOL [Suspect]
     Dosage: 600 MG, QD
     Route: 048
     Dates: start: 20120308, end: 20120502
  5. TELAVIC [Suspect]
     Indication: CHRONIC HEPATITIS C
     Dosage: 2250 MG, QD
     Route: 048
     Dates: start: 20120209, end: 20120229
  6. TELAVIC [Suspect]
     Dosage: 1250 MG, QD
     Route: 048
     Dates: start: 20120301, end: 20120307
  7. TELAVIC [Suspect]
     Dosage: 1000 MG, QD
     Route: 048
     Dates: start: 20120308, end: 20120321
  8. TELAVIC [Suspect]
     Dosage: 750 MG, QD
     Route: 048
     Dates: start: 20120322, end: 20120502
  9. MERCAZOLE [Concomitant]
     Indication: BASEDOW^S DISEASE
     Dosage: DAILY DOSE UNKNOWN, FORMULATION: POR
     Route: 048
  10. METGLUCO [Concomitant]
     Indication: DIABETES MELLITUS
     Dosage: 750 MG, QD, FORMULATION: POR
     Route: 048

REACTIONS (1)
  - Blood creatinine increased [Recovering/Resolving]
